FAERS Safety Report 11275687 (Version 1)
Quarter: 2015Q3

REPORT INFORMATION
  Report Type: Report from Study
  Country: BR (occurrence: BR)
  Receive Date: 20150716
  Receipt Date: 20150716
  Transmission Date: 20151125
  Serious: Yes (Other)
  Sender: FDA-Public Use
  Company Number: PHHY2015BR075652

PATIENT
  Sex: Female
  Weight: 58 kg

DRUGS (4)
  1. RIVOTRIL [Concomitant]
     Active Substance: CLONAZEPAM
     Indication: NERVOUSNESS
     Dosage: 1 DF, QHS (STARTED 5 YEARS AGO)
     Route: 048
  2. DIOVAN [Suspect]
     Active Substance: VALSARTAN
     Indication: HYPERTENSION
     Dosage: 0.5 DF, QD
     Route: 048
  3. ACLASTA [Suspect]
     Active Substance: ZOLEDRONIC ACID
     Indication: PRODUCT USED FOR UNKNOWN INDICATION
     Route: 042
  4. PANTOCAL [Concomitant]
     Indication: GASTRITIS
     Dosage: 2 DF, QD (STARTED MORE THAN 10 YEARS AGO)
     Route: 048

REACTIONS (3)
  - Off label use [Unknown]
  - Eye disorder [Not Recovered/Not Resolved]
  - Osteoporosis [Not Recovered/Not Resolved]
